FAERS Safety Report 4422087-2 (Version None)
Quarter: 2004Q3

REPORT INFORMATION
  Report Type: 
  Country: None (occurrence: None)
  Receive Date: 20040809
  Receipt Date: 20040809
  Transmission Date: 20050211
  Serious: Yes (Hospitalization)
  Sender: FDA-Public Use
  Company Number: None

PATIENT

DRUGS (1)
  1. PHENOBARBITAL 100 MG        WESTWARD [Suspect]
     Indication: CONVULSION
     Dosage: 2 MORNING 1.5 BEDTIM ORAL
     Route: 048
     Dates: start: 20040607, end: 20040712

REACTIONS (1)
  - CONVULSION [None]
